FAERS Safety Report 6329209-7 (Version None)
Quarter: 2009Q3

REPORT INFORMATION
  Report Type: 
  Country: None (occurrence: None)
  Receive Date: 20090825
  Receipt Date: 20090825
  Transmission Date: 20100115
  Serious: Yes (Death, Life-Threatening, Hospitalization)
  Sender: FDA-Public Use
  Company Number: None

PATIENT
  Sex: Male
  Weight: 71.4 kg

DRUGS (8)
  1. EPZICOM [Suspect]
     Indication: ACQUIRED IMMUNODEFICIENCY SYNDROME
     Dosage: I PILL DAILY PO
     Route: 048
     Dates: start: 20090513, end: 20090806
  2. EPZICOM [Suspect]
     Indication: HIV INFECTION
     Dosage: I PILL DAILY PO
     Route: 048
     Dates: start: 20090513, end: 20090806
  3. LEXIVA [Concomitant]
  4. NORVIR [Concomitant]
  5. ISENTRESS [Concomitant]
  6. LIPITOR [Concomitant]
  7. COREG [Concomitant]
  8. PLAVIX [Concomitant]

REACTIONS (6)
  - DIARRHOEA [None]
  - DRUG HYPERSENSITIVITY [None]
  - HAEMODYNAMIC INSTABILITY [None]
  - MULTI-ORGAN FAILURE [None]
  - RASH [None]
  - SERRATIA SEPSIS [None]
